FAERS Safety Report 17412566 (Version 1)
Quarter: 2020Q1

REPORT INFORMATION
  Report Type: Spontaneous
  Country: CA (occurrence: CA)
  Receive Date: 20200213
  Receipt Date: 20200213
  Transmission Date: 20200409
  Serious: Yes (Other)
  Sender: FDA-Public Use
  Company Number: CA-009507513-2002CAN004415

PATIENT
  Age: 69 Year
  Sex: Female

DRUGS (6)
  1. SINGULAIR [Suspect]
     Active Substance: MONTELUKAST SODIUM
     Indication: PRODUCT USED FOR UNKNOWN INDICATION
     Dosage: 1 EVERY 1 DAYS, DOSAGE FORM NOT SPECIFIED
     Route: 065
  2. PREDNISONE. [Concomitant]
     Active Substance: PREDNISONE
     Dosage: DOSAGE FORM NOT SPECIFIED
  3. SYMBICORT [Concomitant]
     Active Substance: BUDESONIDE\FORMOTEROL FUMARATE DIHYDRATE
     Dosage: UNK
  4. CICLESONIDE [Concomitant]
     Active Substance: CICLESONIDE
     Dosage: DOSAGE FORM NOT SPECIFIED
  5. ALBUTEROL. [Concomitant]
     Active Substance: ALBUTEROL
     Dosage: DOSAGE FORM NOT SPECIFIED
  6. XOLAIR [Suspect]
     Active Substance: OMALIZUMAB
     Indication: ASTHMA
     Dosage: DOSAGE FORM NOT SPECIFIED
     Route: 058

REACTIONS (9)
  - Body temperature decreased [Unknown]
  - Dizziness [Unknown]
  - Respiratory tract congestion [Unknown]
  - Dyspnoea [Unknown]
  - Sinus disorder [Unknown]
  - Pain in extremity [Unknown]
  - Cough [Unknown]
  - Thrombosis [Unknown]
  - Nasopharyngitis [Unknown]
